FAERS Safety Report 8439187 (Version 2)
Quarter: 2013Q2

REPORT INFORMATION
  Report Type: Spontaneous
  Country: US (occurrence: None)
  Receive Date: 20120104
  Receipt Date: 20120508
  Transmission Date: 20140414
  Serious: Yes (Other)
  Sender: FDA-Public Use
  Company Number: 2011HGS-002766

PATIENT
  Age: 49 Year
  Sex: Female
  Weight: 108.86 kg

DRUGS (12)
  1. BENLYSTA [Suspect]
     Indication: SYSTEMIC LUPUS ERYTHEMATOSUS
     Dosage: 1 IN 14 D
     Route: 041
     Dates: start: 20110428
  2. PLAQUENIL (HYDROXYCHLOROQUINE SULFATE) / ORAL / TABLET, FILM COATED / 200 MILLIGRAM(S) [Concomitant]
  3. RESTORIL (TEMAZEPAM) [Concomitant]
  4. LYRICA [Concomitant]
  5. BACLOFEN [Concomitant]
  6. LOVASTATIN [Concomitant]
  7. VITAMIN D (ERGOCALCIFEROL) [Concomitant]
  8. SYNTHROID (LEVOTHYROXINE SODIUM) [Concomitant]
  9. METFORMIN (METFORMIN) (METFORMIN) [Concomitant]
  10. LISINOPRIL [Concomitant]
  11. CELEXA [Concomitant]
  12. OMEPRAZOLE [Concomitant]

REACTIONS (3)
  - ARTHRALGIA [None]
  - DRUG EFFECT DECREASED [None]
  - EAR INFECTION [None]
